FAERS Safety Report 9513692 (Version 1)
Quarter: 2013Q3

REPORT INFORMATION
  Report Type: Report from Study
  Country: CA (occurrence: CA)
  Receive Date: 20130910
  Receipt Date: 20130910
  Transmission Date: 20140515
  Serious: Yes (Other)
  Sender: FDA-Public Use
  Company Number: CA-ABBOTT-13P-028-1142726-00

PATIENT
  Sex: Female

DRUGS (2)
  1. HUMIRA [Suspect]
     Indication: CROHN^S DISEASE
     Route: 058
     Dates: start: 20110323
  2. HUMIRA [Suspect]
     Indication: INTESTINAL FISTULA

REACTIONS (2)
  - Device occlusion [Recovered/Resolved]
  - Venous occlusion [Unknown]
